FAERS Safety Report 15503473 (Version 1)
Quarter: 2018Q4

REPORT INFORMATION
  Report Type: Report from Study
  Country: US (occurrence: US)
  Receive Date: 20181016
  Receipt Date: 20181016
  Transmission Date: 20190205
  Serious: No
  Sender: FDA-Public Use
  Company Number: US-AMGEN INC.-USASL2018124212

PATIENT
  Age: 50 Year
  Sex: Female

DRUGS (1)
  1. AIMOVIG [Suspect]
     Active Substance: ERENUMAB-AOOE
     Indication: MIGRAINE WITHOUT AURA
     Dosage: 70 MG, UNK
     Route: 058
     Dates: start: 20180830

REACTIONS (5)
  - Rash [Unknown]
  - Diarrhoea [Unknown]
  - Genital rash [Recovered/Resolved]
  - Pruritus generalised [Unknown]
  - Headache [Unknown]

NARRATIVE: CASE EVENT DATE: 20180831
